FAERS Safety Report 4356039-8 (Version None)
Quarter: 2004Q2

REPORT INFORMATION
  Report Type: 
  Country: None (occurrence: None)
  Receive Date: 20040511
  Receipt Date: 20040430
  Transmission Date: 20050107
  Serious: Yes (Other)
  Sender: FDA-Public Use
  Company Number: CA-ROCHE-366950

PATIENT
  Age: 7 Year
  Sex: Female

DRUGS (16)
  1. CELLCEPT [Suspect]
     Indication: DRUG USE FOR UNKNOWN INDICATION
     Route: 048
  2. CYTOVENE [Suspect]
     Indication: DRUG USE FOR UNKNOWN INDICATION
     Route: 042
  3. FRAGMIN [Suspect]
     Indication: DRUG USE FOR UNKNOWN INDICATION
     Route: 058
  4. VITAMIN K1 [Suspect]
     Indication: DRUG USE FOR UNKNOWN INDICATION
     Route: 042
  5. ACETAMINOPHEN [Concomitant]
     Route: 048
  6. ALTEPLASE [Concomitant]
     Route: 042
  7. CODEINE [Concomitant]
     Route: 048
  8. DIMENHYDRINATE [Concomitant]
     Route: 042
  9. FUROSEMIDE [Concomitant]
     Route: 048
  10. LEUCOVORIN CALCIUM [Concomitant]
     Route: 048
  11. METHYLPREDNISOLONE [Concomitant]
     Route: 042
  12. NORVASC [Concomitant]
     Route: 048
  13. NYSTATIN [Concomitant]
     Route: 048
  14. PREDNISOLONE [Concomitant]
     Route: 048
  15. PROGRAF [Concomitant]
     Route: 048
  16. RANITIDINE [Concomitant]
     Route: 048

REACTIONS (1)
  - INJECTION SITE HAEMORRHAGE [None]
